FAERS Safety Report 9145777 (Version 1)
Quarter: 2013Q1

REPORT INFORMATION
  Report Type: Spontaneous
  Country: US (occurrence: None)
  Receive Date: 20130214
  Receipt Date: 20130214
  Transmission Date: 20140127
  Serious: Yes (Death)
  Sender: FDA-Public Use
  Company Number: 2013020056

PATIENT
  Age: 33 Year
  Sex: Female

DRUGS (7)
  1. CARISOPRODOL (CARISOPRODOL) [Suspect]
     Indication: COMPLETED SUICIDE
     Route: 048
  2. METHOCARBAMOL [Suspect]
     Indication: COMPLETED SUICIDE
     Route: 048
  3. TRAZODONE [Suspect]
     Indication: COMPLETED SUICIDE
     Route: 048
  4. TOPIRAMATE (TOPIRAMATE) [Suspect]
     Indication: COMPLETED SUICIDE
     Route: 048
  5. RISPERIDONE (RISPERIDONE) [Suspect]
     Indication: COMPLETED SUICIDE
     Route: 048
  6. CYCLOBENZAPRINE [Suspect]
     Indication: COMPLETED SUICIDE
     Route: 048
  7. ANTIHISTAMINE [Suspect]
     Indication: COMPLETED SUICIDE
     Route: 048

REACTIONS (3)
  - Completed suicide [None]
  - Cardiac arrest [None]
  - Respiratory arrest [None]
